FAERS Safety Report 5799954-0 (Version None)
Quarter: 2008Q3

REPORT INFORMATION
  Report Type: 
  Country: None (occurrence: None)
  Receive Date: 20080701
  Receipt Date: 20080616
  Transmission Date: 20090109
  Serious: Yes (Other)
  Sender: FDA-Public Use
  Company Number: 2006BI013125

PATIENT
  Age: 62 Year
  Sex: Female
  Weight: 99.7913 kg

DRUGS (15)
  1. AVONEX [Suspect]
     Indication: MULTIPLE SCLEROSIS
     Dosage: 30 UG QW IM
     Route: 030
     Dates: start: 20010801, end: 20060901
  2. LOTREL [Concomitant]
  3. EFFEXOR [Concomitant]
  4. PREDNISONE [Concomitant]
  5. DITROPAN [Concomitant]
  6. LEVOXYL [Concomitant]
  7. ASPIRIN [Concomitant]
  8. PROTONIX [Concomitant]
  9. METHOTREXATE [Concomitant]
  10. PEPCID [Concomitant]
  11. FOLATE [Concomitant]
  12. CRESTOR [Concomitant]
  13. BENICAR [Concomitant]
  14. HYDROCHLOROTHIAZIDE [Concomitant]
  15. WELLCHOL [Concomitant]

REACTIONS (3)
  - BREAST CANCER FEMALE [None]
  - BREAST CANCER RECURRENT [None]
  - INFLUENZA LIKE ILLNESS [None]
